FAERS Safety Report 7222258-6 (Version None)
Quarter: 2011Q1

REPORT INFORMATION
  Report Type: 
  Country: None (occurrence: None)
  Receive Date: 20110112
  Receipt Date: 20110105
  Transmission Date: 20110831
  Serious: Yes (Death, Hospitalization)
  Sender: FDA-Public Use
  Company Number: AT-MERCK-1003AUT00008

PATIENT
  Age: 66 Year
  Sex: Female
  Weight: 77 kg

DRUGS (4)
  1. MESALAMINE [Suspect]
     Indication: COLITIS
     Route: 048
     Dates: start: 20100214, end: 20100218
  2. ENOXAPARIN SODIUM [Concomitant]
     Route: 051
  3. PRIMAXIN [Suspect]
     Indication: PNEUMONIA
     Route: 041
     Dates: start: 20100208, end: 20100215
  4. TORSEMIDE [Concomitant]
     Route: 065

REACTIONS (5)
  - BLOOD ALKALINE PHOSPHATASE INCREASED [None]
  - GAMMA-GLUTAMYLTRANSFERASE INCREASED [None]
  - INTESTINAL ULCER [None]
  - SUDDEN DEATH [None]
  - ALANINE AMINOTRANSFERASE INCREASED [None]
